FAERS Safety Report 8619390-9 (Version None)
Quarter: 2012Q3

REPORT INFORMATION
  Report Type: 
  Country: None (occurrence: None)
  Receive Date: 20120816
  Receipt Date: 20120816
  Transmission Date: 20120928
  Serious: No
  Sender: FDA-Public Use
  Company Number: None

PATIENT
  Age: 69 Year
  Sex: Male
  Weight: 88.905 kg

DRUGS (3)
  1. PREVACID [Concomitant]
  2. NEXIUM [Suspect]
     Dosage: CAPSULE ONCE DAILY PO
     Route: 048
  3. OMEPRAZOLE [Suspect]
     Dosage: CAPSULE ONCE DAILY PO
     Route: 048

REACTIONS (1)
  - DIARRHOEA [None]
